FAERS Safety Report 14659802 (Version 2)
Quarter: 2018Q2

REPORT INFORMATION
  Report Type: Spontaneous
  Country: US (occurrence: US)
  Receive Date: 20180320
  Receipt Date: 20180422
  Transmission Date: 20180711
  Serious: Yes (Other)
  Sender: FDA-Public Use
  Company Number: US-APOTEX-2018AP008382

PATIENT
  Age: 80 Year
  Sex: Male

DRUGS (2)
  1. CEFEPIME [Suspect]
     Active Substance: CEFEPIME HYDROCHLORIDE
     Indication: BACTERAEMIA
  2. CEFEPIME [Suspect]
     Active Substance: CEFEPIME HYDROCHLORIDE
     Indication: BACTERIAL PYELONEPHRITIS
     Dosage: 1 G, TID
     Route: 065

REACTIONS (2)
  - Myoclonus [Recovered/Resolved]
  - Neurotoxicity [Recovered/Resolved]
